FAERS Safety Report 21212919 (Version 1)
Quarter: 2022Q3

REPORT INFORMATION
  Report Type: Spontaneous
  Country: US (occurrence: US)
  Receive Date: 20220815
  Receipt Date: 20220815
  Transmission Date: 20221027
  Serious: Yes (Other)
  Sender: FDA-Public Use
  Company Number: US-BAXTER-2022BAX017079

PATIENT
  Sex: Female

DRUGS (1)
  1. PENICILLIN G [Suspect]
     Active Substance: PENICILLIN G
     Indication: Pharyngitis streptococcal
     Dosage: INJECTION
     Route: 065

REACTIONS (1)
  - Syncope [Unknown]
